FAERS Safety Report 9258604 (Version 2)
Quarter: 2013Q2

REPORT INFORMATION
  Report Type: Spontaneous
  Country: IT (occurrence: IT)
  Receive Date: 20130426
  Receipt Date: 20130506
  Transmission Date: 20140414
  Serious: Yes (Other)
  Sender: FDA-Public Use
  Company Number: IT-TEVA-399232ISR

PATIENT
  Age: 25 Year
  Sex: Female

DRUGS (1)
  1. AMOXICILLINA TRIIDRATA/POTASSIO CLAVULANATO [Suspect]
     Indication: TONSILLITIS
     Dosage: 1 GRAM DAILY;
     Route: 048
     Dates: start: 20130307, end: 20130307

REACTIONS (2)
  - Erythema [Unknown]
  - Oedema [Unknown]
